FAERS Safety Report 4847614-2 (Version None)
Quarter: 2005Q4

REPORT INFORMATION
  Report Type: 
  Country: None (occurrence: None)
  Receive Date: 20051205
  Receipt Date: 20051121
  Transmission Date: 20060501
  Serious: Yes (Hospitalization, Other)
  Sender: FDA-Public Use
  Company Number: 2005160127

PATIENT
  Age: 35 Year
  Sex: Female

DRUGS (2)
  1. DETRUSITOL (TOLTERODINE L-TARTRATE) [Suspect]
     Indication: HYPERTONIC BLADDER
     Dosage: ORAL
     Route: 048
  2. REGURIN (TROSPIUM CHLORIDE) [Suspect]
     Indication: ILL-DEFINED DISORDER

REACTIONS (2)
  - ANURIA [None]
  - DRUG INEFFECTIVE [None]
